FAERS Safety Report 5584784-5 (Version None)
Quarter: 2008Q1

REPORT INFORMATION
  Report Type: 
  Country: None (occurrence: None)
  Receive Date: 20080103
  Receipt Date: 20071225
  Transmission Date: 20080703
  Serious: Yes (Death, Other)
  Sender: FDA-Public Use
  Company Number: 2006JP001717

PATIENT
  Age: 66 Year
  Sex: Female
  Weight: 49 kg

DRUGS (15)
  1. TACROLIMUS [Suspect]
     Indication: RHEUMATOID ARTHRITIS
     Dosage: 1.5 MG, UID/QD; ORAL, 3MG, UID/QD; ORAL,
     Route: 048
     Dates: start: 20051027, end: 20051207
  2. TACROLIMUS [Suspect]
     Indication: RHEUMATOID ARTHRITIS
     Dosage: 1.5 MG, UID/QD; ORAL, 3MG, UID/QD; ORAL,
     Route: 048
     Dates: start: 20051208, end: 20070305
  3. PREDNISOLONE TAB [Suspect]
     Indication: RHEUMATOID ARTHRITIS
     Dosage: 5 MG, UID/QD; ORAL; 2.5 MG, UID/QD, ORAL
     Route: 048
     Dates: end: 20060802
  4. PREDNISOLONE TAB [Suspect]
     Indication: RHEUMATOID ARTHRITIS
     Dosage: 5 MG, UID/QD; ORAL; 2.5 MG, UID/QD, ORAL
     Route: 048
     Dates: start: 20060803, end: 20070306
  5. METHOTREXATE [Suspect]
     Indication: RHEUMATOID ARTHRITIS
     Dosage: 5 MG, WEEKLY, ORAL
     Route: 048
     Dates: end: 20070306
  6. ENBREL [Suspect]
     Indication: RHEUMATOID ARTHRITIS
     Dosage: 50 MG, WEEKLY, SUBCUTANEOUS
     Route: 058
     Dates: start: 20061130, end: 20070215
  7. ETODOLAC [Concomitant]
  8. VOLTAREN [Concomitant]
  9. ISCOTIN (ISONIAZID) TABLET [Concomitant]
  10. REMICADE [Concomitant]
  11. FOLIAMIN (FOLIC ACID) TABLET [Concomitant]
  12. KOLANTYL (DICYCLOVERINE HYDROCHLORIDE, METHYCELLULOSE, MAGNESIUM OXIDE [Concomitant]
  13. DIOVAN [Concomitant]
  14. NORVASC [Concomitant]
  15. ONEALFA (ALFACALCIDOL) TABLET [Concomitant]

REACTIONS (5)
  - BETA-N-ACETYL-D-GLUCOSAMINIDASE INCREASED [None]
  - CONDITION AGGRAVATED [None]
  - HEPATITIS B [None]
  - HEPATORENAL SYNDROME [None]
  - LYMPHOCYTE COUNT DECREASED [None]
